FAERS Safety Report 8495732-2 (Version None)
Quarter: 2012Q3

REPORT INFORMATION
  Report Type: 
  Country: None (occurrence: None)
  Receive Date: 20120709
  Receipt Date: 20120620
  Transmission Date: 20120928
  Serious: No
  Sender: FDA-Public Use
  Company Number: US-ASTRAZENECA-2012SE41849

PATIENT
  Age: 70 Year
  Sex: Female
  Weight: 98.9 kg

DRUGS (12)
  1. FASLODEX [Suspect]
     Indication: BREAST CANCER
     Route: 030
  2. TRAMADOL HCL [Concomitant]
     Indication: PAIN
  3. ASPIRIN [Concomitant]
  4. FLEXERIL [Concomitant]
     Indication: MUSCLE RELAXANT THERAPY
  5. BLOOD PRESSURE PILL [Concomitant]
     Indication: HYPERTENSION
  6. ARIMIDEX [Suspect]
     Indication: BREAST CANCER
     Route: 048
     Dates: start: 20080101, end: 20120301
  7. CHOLESTEROL PILL [Concomitant]
     Indication: BLOOD CHOLESTEROL INCREASED
  8. VITAMIN B COMPLEX CAP [Concomitant]
  9. OMEGA 3 OIL [Concomitant]
  10. FEMARA [Concomitant]
  11. NEXIUM [Suspect]
     Indication: GASTROOESOPHAGEAL REFLUX DISEASE
     Route: 048
  12. WATER PILL [Concomitant]

REACTIONS (14)
  - GAIT DISTURBANCE [None]
  - BLOOD CHOLESTEROL INCREASED [None]
  - DIZZINESS [None]
  - URINE ODOUR ABNORMAL [None]
  - ABNORMAL FAECES [None]
  - DRUG HYPERSENSITIVITY [None]
  - ERUCTATION [None]
  - MALAISE [None]
  - ARTHRALGIA [None]
  - HEADACHE [None]
  - PAIN IN EXTREMITY [None]
  - NAUSEA [None]
  - MUSCULOSKELETAL STIFFNESS [None]
  - MYALGIA [None]
